FAERS Safety Report 22033585 (Version 1)
Quarter: 2023Q1

REPORT INFORMATION
  Report Type: Spontaneous
  Country: US (occurrence: US)
  Receive Date: 20230224
  Receipt Date: 20230224
  Transmission Date: 20230418
  Serious: Yes (Hospitalization)
  Sender: FDA-Public Use
  Company Number: US-009507513-2302USA007109

PATIENT
  Sex: Female

DRUGS (1)
  1. ERTAPENEM SODIUM [Suspect]
     Active Substance: ERTAPENEM SODIUM
     Dosage: UNK
     Route: 042

REACTIONS (4)
  - Adverse event [Unknown]
  - Motor dysfunction [Unknown]
  - Dyspnoea [Unknown]
  - Product administered by wrong person [Unknown]
